FAERS Safety Report 15886631 (Version 2)
Quarter: 2019Q1

REPORT INFORMATION
  Report Type: Spontaneous
  Country: CZ (occurrence: CZ)
  Receive Date: 20190129
  Receipt Date: 20190304
  Transmission Date: 20190417
  Serious: Yes (Hospitalization)
  Sender: FDA-Public Use
  Company Number: CZ-CELLTRION INC.-2019CZ018095

PATIENT

DRUGS (1)
  1. RITUXIMAB (UNKNOWN) [Suspect]
     Active Substance: RITUXIMAB
     Indication: HAEMOPHILIA
     Dosage: 8X 375

REACTIONS (4)
  - Product use issue [Unknown]
  - Sepsis [Unknown]
  - Pneumonia [Unknown]
  - Product use in unapproved indication [Unknown]
